FAERS Safety Report 7951176-0 (Version None)
Quarter: 2011Q4

REPORT INFORMATION
  Report Type: 
  Country: None (occurrence: None)
  Receive Date: 20111128
  Receipt Date: 20111115
  Transmission Date: 20120403
  Serious: Yes (Other)
  Sender: FDA-Public Use
  Company Number: 2011P1010230

PATIENT
  Age: 71 Year
  Sex: Female

DRUGS (1)
  1. FAMOTIDINE [Suspect]
     Dosage: PO
     Route: 048

REACTIONS (5)
  - HEPATIC FUNCTION ABNORMAL [None]
  - EOSINOPHIL COUNT INCREASED [None]
  - RENAL FAILURE CHRONIC [None]
  - DIALYSIS [None]
  - CONDITION AGGRAVATED [None]
